FAERS Safety Report 9375079 (Version 1)
Quarter: 2013Q2

REPORT INFORMATION
  Report Type: Spontaneous
  Country: NZ (occurrence: NZ)
  Receive Date: 20130628
  Receipt Date: 20130628
  Transmission Date: 20140414
  Serious: Yes (Other)
  Sender: FDA-Public Use
  Company Number: NZ-JNJFOC-20130400519

PATIENT
  Age: 30 Year
  Sex: Female
  Weight: 80 kg

DRUGS (12)
  1. REMICADE [Suspect]
     Indication: COLITIS
     Route: 042
     Dates: start: 20130529
  2. REMICADE [Suspect]
     Indication: COLITIS
     Route: 042
     Dates: start: 20130219
  3. REMICADE [Suspect]
     Indication: COLITIS
     Route: 042
     Dates: start: 20130306
  4. REMICADE [Suspect]
     Indication: CROHN^S DISEASE
     Route: 042
     Dates: start: 20130529
  5. REMICADE [Suspect]
     Indication: CROHN^S DISEASE
     Route: 042
     Dates: start: 20130219
  6. REMICADE [Suspect]
     Indication: CROHN^S DISEASE
     Route: 042
     Dates: start: 20130306
  7. TOPIRAMATE [Suspect]
     Indication: HEADACHE
     Dosage: B.O
     Route: 048
  8. MAGNESIUM [Concomitant]
     Route: 065
  9. MONOFEME [Concomitant]
     Route: 065
  10. LOSEC [Concomitant]
     Route: 065
  11. LORATADINE [Concomitant]
     Indication: PREMEDICATION
     Route: 048
     Dates: start: 20130219
  12. HYDROCORTISONE [Concomitant]
     Indication: PREMEDICATION
     Route: 042
     Dates: start: 20130219

REACTIONS (8)
  - Headache [Recovering/Resolving]
  - Infusion related reaction [Not Recovered/Not Resolved]
  - Nausea [Not Recovered/Not Resolved]
  - Vomiting [Not Recovered/Not Resolved]
  - Nasopharyngitis [Not Recovered/Not Resolved]
  - Paraesthesia [Unknown]
  - Hypoaesthesia [Unknown]
  - Neck mass [Not Recovered/Not Resolved]
